FAERS Safety Report 9162945 (Version 1)
Quarter: 2013Q1

REPORT INFORMATION
  Report Type: Spontaneous
  Country: US (occurrence: None)
  Receive Date: 20130222
  Receipt Date: 20130222
  Transmission Date: 20140127
  Serious: Yes (Other)
  Sender: FDA-Public Use
  Company Number: 1603639

PATIENT
  Age: 53 Year
  Sex: Male

DRUGS (3)
  1. DEXTROSE [Suspect]
     Indication: PROPHYLAXIS
     Route: 051
  2. TPN [Suspect]
     Indication: ILEUS
  3. (VASOPRESSIN) [Concomitant]

REACTIONS (3)
  - Glycosuria [None]
  - Hyperglycaemia [None]
  - Urine output increased [None]
